FAERS Safety Report 24952580 (Version 1)
Quarter: 2025Q1

REPORT INFORMATION
  Report Type: Spontaneous
  Country: US (occurrence: US)
  Receive Date: 20250210
  Receipt Date: 20250210
  Transmission Date: 20250408
  Serious: No
  Sender: NOVARTIS
  Company Number: US-002147023-NVSC2025US019244

PATIENT
  Age: 52 Year
  Sex: Female

DRUGS (2)
  1. LETROZOLE [Suspect]
     Active Substance: LETROZOLE
     Indication: Product used for unknown indication
     Route: 065
  2. IBRANCE [Suspect]
     Active Substance: PALBOCICLIB
     Indication: Product used for unknown indication
     Route: 065

REACTIONS (8)
  - Arthralgia [Unknown]
  - Headache [Unknown]
  - Vomiting [Unknown]
  - Back pain [Unknown]
  - Dizziness [Unknown]
  - Hyperhidrosis [Unknown]
  - Fatigue [Unknown]
  - Product dose omission issue [Unknown]
